FAERS Safety Report 23705188 (Version 2)
Quarter: 2025Q2

REPORT INFORMATION
  Report Type: Report from Study
  Country: US (occurrence: US)
  Receive Date: 20240404
  Receipt Date: 20250408
  Transmission Date: 20250717
  Serious: Yes (Hospitalization, Other)
  Sender: ABBVIE
  Company Number: US-ABBVIE-5703053

PATIENT
  Age: 77 Year
  Sex: Male

DRUGS (1)
  1. SKYRIZI [Suspect]
     Active Substance: RISANKIZUMAB-RZAA
     Indication: Psoriasis
     Route: 058
     Dates: start: 20230519

REACTIONS (5)
  - Knee operation [Unknown]
  - Vertigo [Unknown]
  - Fall [Unknown]
  - Limb injury [Unknown]
  - Back injury [Unknown]

NARRATIVE: CASE EVENT DATE: 20250301
